FAERS Safety Report 7434097-1 (Version None)
Quarter: 2011Q2

REPORT INFORMATION
  Report Type: 
  Country: None (occurrence: None)
  Receive Date: 20110425
  Receipt Date: 20110418
  Transmission Date: 20111010
  Serious: Yes (Death, Other)
  Sender: FDA-Public Use
  Company Number: JP-CELGENEUS-087-21880-11012813

PATIENT
  Sex: Female
  Weight: 34.8 kg

DRUGS (28)
  1. OXYCONTIN [Concomitant]
     Indication: MULTIPLE MYELOMA
     Dosage: 40 MILLIGRAM
     Route: 065
     Dates: start: 20100828, end: 20100830
  2. ANAFRANIL [Concomitant]
     Indication: MULTIPLE MYELOMA
     Dosage: 25 MILLIGRAM
     Route: 041
     Dates: start: 20100906, end: 20100921
  3. SOLU-CORTEF [Concomitant]
     Dosage: 200 MILLIGRAM
     Route: 065
     Dates: start: 20100919, end: 20100919
  4. IRRADIATED LEUKOCYTE POOR RED CELLS [Concomitant]
     Indication: MULTIPLE MYELOMA
     Dosage: 2 IU (INTERNATIONAL UNIT)
     Route: 041
     Dates: start: 20100909, end: 20100921
  5. ISOTONIC SODIUM CHLORIDE SOLUTION [Concomitant]
     Dosage: 200 MILLILITER
     Route: 041
     Dates: start: 20100917, end: 20100928
  6. LACTEC [Concomitant]
     Dosage: 1500 MILLILITER
     Route: 041
     Dates: start: 20100919, end: 20100920
  7. KENALOG [Concomitant]
     Route: 061
     Dates: start: 20100901, end: 20100928
  8. PLATELETS, CONCENTRATED [Concomitant]
     Indication: MULTIPLE MYELOMA
     Dosage: 10 U
     Route: 048
     Dates: start: 20100919, end: 20100927
  9. NEUPOGEN [Concomitant]
     Indication: RENAL FAILURE
     Route: 065
  10. MYSLEE [Concomitant]
     Dosage: 5 MILLIGRAM
     Route: 048
     Dates: start: 20100828, end: 20100909
  11. MAGLAX [Concomitant]
     Indication: PROPHYLAXIS
     Dosage: 1500 MILLIGRAM
     Route: 048
     Dates: start: 20100828, end: 20100909
  12. OXYCONTIN [Concomitant]
     Dosage: 60 MILLIGRAM
     Route: 065
     Dates: start: 20100831, end: 20100901
  13. GLUCOSE [Concomitant]
     Indication: MULTIPLE MYELOMA
     Dosage: 250 MILLIGRAM
     Route: 041
     Dates: start: 20100906, end: 20100921
  14. VOLTAREN [Concomitant]
     Dosage: 12.5 MILLIGRAM
     Route: 061
     Dates: start: 20100919, end: 20100921
  15. REVLIMID [Suspect]
     Indication: MULTIPLE MYELOMA
     Dosage: 15 MILLIGRAM
     Route: 048
     Dates: start: 20100828, end: 20100917
  16. POSTERISAN [Concomitant]
     Dosage: 4 GRAM
     Route: 061
     Dates: start: 20100828
  17. VOLTAREN [Concomitant]
     Indication: MULTIPLE MYELOMA
     Dosage: 25 MILLIGRAM
     Route: 061
     Dates: start: 20100831, end: 20100901
  18. NOVAMIN [Concomitant]
     Indication: PROPHYLAXIS
     Dosage: 15 MILLIGRAM
     Route: 048
     Dates: start: 20100828, end: 20100928
  19. MOBIC [Concomitant]
     Indication: MULTIPLE MYELOMA
     Dosage: 10 MILLIGRAM
     Route: 048
     Dates: start: 20100902, end: 20100928
  20. FUKUKORIN [Concomitant]
     Indication: HYPERTENSION
     Dosage: 4 GRAM
     Route: 041
     Dates: start: 20100917, end: 20100921
  21. LACTEC [Concomitant]
     Dosage: 1500 MILLILITER
     Route: 041
     Dates: start: 20100919, end: 20100920
  22. LENADEX [Suspect]
     Indication: MULTIPLE MYELOMA
     Dosage: 40 MILLIGRAM
     Route: 048
     Dates: start: 20100828, end: 20100916
  23. PANTOSIN [Concomitant]
     Indication: PROPHYLAXIS
     Dosage: 300 MILLIGRAM
     Route: 048
     Dates: start: 20100828, end: 20100909
  24. PREPENON [Concomitant]
     Indication: MULTIPLE MYELOMA
     Dosage: 36 MILLIGRAM
     Route: 041
     Dates: start: 20100901, end: 20100928
  25. ASPIRIN [Concomitant]
     Indication: PROPHYLAXIS
     Dosage: 100 MILLIGRAM
     Route: 048
     Dates: start: 20100828, end: 20100908
  26. SOLITA-T NO.3 [Concomitant]
     Indication: MULTIPLE MYELOMA
     Dosage: 1000 MILLILITER
     Route: 041
     Dates: start: 20100901, end: 20100913
  27. ISOTONIC SODIUM CHLORIDE SOLUTION [Concomitant]
     Indication: MULTIPLE MYELOMA
     Dosage: 1000 MILLILITER
     Route: 041
     Dates: start: 20100913, end: 20100921
  28. LASIX [Concomitant]
     Dosage: 20 MILLIGRAM
     Route: 041
     Dates: start: 20100919, end: 20100919

REACTIONS (9)
  - SEPTIC SHOCK [None]
  - ANAEMIA [None]
  - RENAL FAILURE [None]
  - PLATELET COUNT DECREASED [None]
  - ALANINE AMINOTRANSFERASE INCREASED [None]
  - HAEMORRHAGIC DIATHESIS [None]
  - ESCHERICHIA INFECTION [None]
  - SEPSIS [None]
  - WHITE BLOOD CELL COUNT DECREASED [None]
